FAERS Safety Report 24004813 (Version 1)
Quarter: 2024Q2

REPORT INFORMATION
  Report Type: Spontaneous
  Country: US (occurrence: None)
  Receive Date: 20240621
  Receipt Date: 20240621
  Transmission Date: 20240716
  Serious: Yes (Hospitalization)
  Sender: FDA-Public Use
  Company Number: None

PATIENT
  Sex: Female

DRUGS (11)
  1. HUMIRA [Suspect]
     Active Substance: ADALIMUMAB
     Indication: Rheumatoid arthritis
     Dosage: OTHER QUANTITY : INJECT 1 PEN;?FREQUENCY : EVERY OTHER WEEK;?
     Route: 058
     Dates: start: 20221108
  2. ALENDRONATE [Concomitant]
     Active Substance: ALENDRONATE SODIUM
  3. ATORVASTATIN [Concomitant]
     Active Substance: ATORVASTATIN
  4. CHLORHEX GLU SOL [Concomitant]
  5. ELIQUIS [Concomitant]
     Active Substance: APIXABAN
  6. HUMIRA [Concomitant]
     Active Substance: ADALIMUMAB
  7. LATANOPROST SOL [Concomitant]
  8. LEVOTHYROXINE [Concomitant]
     Active Substance: LEVOTHYROXINE\LEVOTHYROXINE SODIUM
  9. LOSARTAN POTASSIUM [Concomitant]
     Active Substance: LOSARTAN POTASSIUM
  10. MELOXICAM [Concomitant]
     Active Substance: MELOXICAM
  11. METFORMIN [Concomitant]
     Active Substance: METFORMIN HYDROCHLORIDE

REACTIONS (2)
  - Stent placement [None]
  - Cardiac pacemaker insertion [None]
